FAERS Safety Report 7515954-4 (Version None)
Quarter: 2011Q2

REPORT INFORMATION
  Report Type: 
  Country: None (occurrence: None)
  Receive Date: 20110426
  Receipt Date: 20100910
  Transmission Date: 20111010
  Serious: Yes (Other)
  Sender: FDA-Public Use
  Company Number: M-10-024

PATIENT
  Age: 45 Year
  Sex: Male

DRUGS (1)
  1. BENZTROPINE MESYLATE [Suspect]
     Dosage: ORAL (047)
     Route: 048

REACTIONS (1)
  - RASH [None]
